FAERS Safety Report 8829359 (Version 3)
Quarter: 2013Q4

REPORT INFORMATION
  Report Type: Report from Study
  Country: CA (occurrence: CA)
  Receive Date: 20121008
  Receipt Date: 20131202
  Transmission Date: 20140711
  Serious: Yes (Life-Threatening, Hospitalization)
  Sender: FDA-Public Use
  Company Number: CA-ROCHE-1141436

PATIENT
  Age: 64 Year
  Sex: Female
  Weight: 68.1 kg

DRUGS (11)
  1. RITUXIMAB [Suspect]
     Indication: RHEUMATOID ARTHRITIS
     Route: 042
     Dates: start: 20110101
  2. PREDNISONE [Concomitant]
  3. AZATHIOPRINE [Concomitant]
  4. FOSAMAX [Concomitant]
  5. FLAXSEED OIL [Concomitant]
  6. DOCUSATE [Concomitant]
  7. PANTOPRAZOLE [Concomitant]
  8. FERROUS FUMARATE [Concomitant]
  9. ACETAMINOPHEN [Concomitant]
     Route: 048
     Dates: start: 20110106
  10. DIPHENHYDRAMINE HCL [Concomitant]
     Route: 048
     Dates: start: 20110106
  11. METHYLPREDNISOLONE [Concomitant]
     Route: 042
     Dates: start: 20110106

REACTIONS (4)
  - Ankle fracture [Recovered/Resolved]
  - Knee operation [Recovered/Resolved]
  - Fall [Recovered/Resolved]
  - White blood cell count decreased [Unknown]
